FAERS Safety Report 7136456-3 (Version None)
Quarter: 2010Q4

REPORT INFORMATION
  Report Type: 
  Country: None (occurrence: None)
  Receive Date: 20101206
  Receipt Date: 20041116
  Transmission Date: 20110411
  Serious: Yes (Death)
  Sender: FDA-Public Use
  Company Number: GB-ACTELION-A-CH2004-08099

PATIENT
  Age: 74 Year
  Sex: Male

DRUGS (2)
  1. BOSENTAN TABLET 125 MG EU [Suspect]
     Indication: PULMONARY HYPERTENSION
     Dosage: 125 MG, BID
     Route: 048
     Dates: start: 20031001, end: 20040129
  2. BOSENTAN TABLET 125 MG EU [Suspect]
     Dosage: 62.5 MG, BID
     Route: 048
     Dates: start: 20030919, end: 20031001

REACTIONS (1)
  - DEATH [None]
